FAERS Safety Report 9284258 (Version 2)
Quarter: 2013Q2

REPORT INFORMATION
  Report Type: Report from Study
  Country: US (occurrence: US)
  Receive Date: 20130510
  Receipt Date: 20130524
  Transmission Date: 20140414
  Serious: No
  Sender: FDA-Public Use
  Company Number: US-US-EMD SERONO, INC.-7209680

PATIENT
  Sex: Female

DRUGS (2)
  1. REBIF [Suspect]
     Indication: PRODUCT USED FOR UNKNOWN INDICATION
     Dates: start: 20130407
  2. REBIF [Suspect]
     Route: 058
     Dates: start: 20130502

REACTIONS (2)
  - Poor quality sleep [Not Recovered/Not Resolved]
  - Rash [Unknown]
